FAERS Safety Report 25110173 (Version 3)
Quarter: 2025Q2

REPORT INFORMATION
  Report Type: Report from Study
  Country: CA (occurrence: CA)
  Receive Date: 20250324
  Receipt Date: 20250422
  Transmission Date: 20250716
  Serious: Yes (Other)
  Sender: ALEXION PHARMACEUTICALS
  Company Number: CA-AstraZeneca-CH-00830990A

PATIENT
  Age: 54 Year
  Weight: 145.2 kg

DRUGS (11)
  1. STRENSIQ [Suspect]
     Active Substance: ASFOTASE ALFA
     Indication: Hypophosphatasia
     Dosage: 116 MILLIGRAM (2 MG/KG) , TIW
  2. STRENSIQ [Suspect]
     Active Substance: ASFOTASE ALFA
     Dosage: 110 MILLIGRAM, TIW
  3. STRENSIQ [Suspect]
     Active Substance: ASFOTASE ALFA
     Dosage: 112 MILLIGRAM, TIW
  4. PROMETRIUM [Concomitant]
     Active Substance: PROGESTERONE
     Route: 065
  5. CALCIUM [Concomitant]
     Active Substance: CALCIUM
     Route: 065
  6. VITAMIN B12 [Concomitant]
     Active Substance: CYANOCOBALAMIN
     Route: 065
  7. VITAMIN D [Concomitant]
     Active Substance: VITAMIN D NOS
     Route: 065
  8. IRON [Concomitant]
     Active Substance: IRON
     Route: 065
  9. Divol [Concomitant]
     Route: 065
  10. MAGNESIUM [Concomitant]
     Active Substance: MAGNESIUM
     Route: 065
  11. VITAMIN B6 [Concomitant]
     Active Substance: PYRIDOXINE HYDROCHLORIDE
     Route: 065

REACTIONS (8)
  - Nephrolithiasis [Recovered/Resolved]
  - Pulmonary fibrosis [Unknown]
  - Rib fracture [Unknown]
  - Intervertebral disc displacement [Unknown]
  - Fatigue [Not Recovered/Not Resolved]
  - Asthenia [Not Recovered/Not Resolved]
  - Blood alkaline phosphatase increased [Unknown]
  - Alanine aminotransferase increased [Unknown]
